FAERS Safety Report 8723493 (Version 2)
Quarter: 2012Q4

REPORT INFORMATION
  Report Type: 
  Country: US (occurrence: US)
  Receive Date: 20120814
  Receipt Date: 20120912
  Transmission Date: 20130627
  Serious: Yes (Hospitalization)
  Sender: FDA-Public Use
  Company Number: US-B.I. PHARMACEUTICALS,INC./RIDGEFIELD-2012-BP-17701BP

PATIENT
  Age: 67 Year
  Sex: Female
  Weight: 97.52 kg

DRUGS (8)
  1. PRADAXA [Suspect]
     Indication: ATRIAL FIBRILLATION
     Dosage: 300 mg
     Route: 048
     Dates: start: 20120207
  2. LIPITOR [Concomitant]
     Indication: BLOOD CHOLESTEROL INCREASED
     Dosage: 40 mg
     Route: 048
     Dates: start: 20091001
  3. LISINOPRIL [Concomitant]
     Indication: HYPERTENSION
     Route: 048
  4. METOPROLOL [Concomitant]
     Indication: HYPERTENSION
     Dosage: 100 mg
     Route: 048
     Dates: start: 20090428
  5. FLECAINIDE [Concomitant]
     Indication: ATRIAL FIBRILLATION
     Dosage: 200 mg
     Route: 048
     Dates: start: 20090429
  6. PROZAC [Concomitant]
     Indication: ANXIETY
     Dosage: 20 mg
     Dates: start: 20120202
  7. PROZAC [Concomitant]
     Indication: DEPRESSION
  8. VIT D [Concomitant]
     Dates: start: 20120815

REACTIONS (10)
  - Hypertension [Not Recovered/Not Resolved]
  - Wrist fracture [Recovered/Resolved]
  - Fall [Recovered/Resolved]
  - Contusion [Recovered/Resolved]
  - Fall [Recovered/Resolved]
  - Hypercholesterolaemia [Not Recovered/Not Resolved]
  - Contusion [Recovered/Resolved]
  - Cardiac enzymes increased [Recovered/Resolved]
  - Excoriation [Recovered/Resolved]
  - Contusion [Recovered/Resolved]
